FAERS Safety Report 9008919 (Version 2)
Quarter: 2013Q1

REPORT INFORMATION
  Report Type: Spontaneous
  Country: GB (occurrence: GB)
  Receive Date: 20130111
  Receipt Date: 20130122
  Transmission Date: 20140127
  Serious: Yes (Other)
  Sender: FDA-Public Use
  Company Number: GB-PFIZER INC-2013010899

PATIENT
  Age: 76 Year
  Sex: Male
  Weight: 94.5 kg

DRUGS (5)
  1. ATENOLOL [Suspect]
     Indication: HYPERTENSION
     Dosage: 50 MG, DAILY
     Route: 048
     Dates: start: 20070607
  2. LOSARTAN [Concomitant]
     Indication: HYPERTENSION
     Dosage: 100 MG, DAILY
     Route: 048
     Dates: start: 20070607
  3. AMLODIPINE [Concomitant]
     Indication: HYPERTENSION
     Dosage: 5 MG, DAILY
     Route: 048
     Dates: start: 20121219
  4. CLOPIDOGREL [Concomitant]
     Dosage: UNK
     Route: 065
  5. SIMVASTATIN [Concomitant]
     Dosage: UNK
     Route: 065

REACTIONS (1)
  - Cerebral ischaemia [Unknown]
